FAERS Safety Report 9870608 (Version 1)
Quarter: 2014Q1

REPORT INFORMATION
  Report Type: Spontaneous
  Country: US (occurrence: None)
  Receive Date: 20140204
  Receipt Date: 20140204
  Transmission Date: 20141002
  Serious: Yes (Hospitalization, Other)
  Sender: FDA-Public Use
  Company Number: None

PATIENT
  Age: 4 Year
  Sex: Female

DRUGS (4)
  1. TRILEPTAL (OXCARBAZEPINE) [Suspect]
     Indication: COMPLEX PARTIAL SEIZURES
     Route: 048
     Dates: start: 201209, end: 20131026
  2. CLONIDINE [Concomitant]
  3. NATURAL ZZZS [Concomitant]
  4. MELATOMIN [Concomitant]

REACTIONS (4)
  - Palpitations [None]
  - Blood pressure increased [None]
  - Unresponsive to stimuli [None]
  - Sleep apnoea syndrome [None]
